FAERS Safety Report 19138447 (Version 4)
Quarter: 2022Q3

REPORT INFORMATION
  Report Type: Other
  Country: CA (occurrence: CA)
  Receive Date: 20210415
  Receipt Date: 20220920
  Transmission Date: 20221026
  Serious: Yes (Hospitalization, Other)
  Sender: FDA-Public Use
  Company Number: CA-CELLTRION INC.-2021CA004571

PATIENT

DRUGS (18)
  1. RITUXIMAB [Suspect]
     Active Substance: RITUXIMAB
     Indication: Systemic lupus erythematosus
     Dosage: 1000.0 MILLIGRAM
     Route: 042
  2. RITUXIMAB [Suspect]
     Active Substance: RITUXIMAB
     Dosage: 1000.0 MILLIGRAM
     Route: 042
  3. ASPIRIN [Concomitant]
     Active Substance: ASPIRIN
     Dosage: 80.0 MILLIGRAM, 1 EVERY 1 DAYS
     Route: 048
  4. ALENDRONATE SODIUM [Concomitant]
     Active Substance: ALENDRONATE SODIUM
     Dosage: 70.0 MILLIGRAM, 1 EVERY 1 WEEKS
     Route: 048
  5. BENADRYL [Concomitant]
     Active Substance: DIPHENHYDRAMINE HYDROCHLORIDE
     Indication: Premedication
     Dosage: 50.0 MILLIGRAM
     Route: 048
  6. CALCIUM [Concomitant]
     Active Substance: CALCIUM
     Dosage: 500.0 MILLIGRAM, 2 EVERY 1 DAYS
     Route: 048
  7. FOLIC ACID [Concomitant]
     Active Substance: FOLIC ACID
     Dosage: 5.0 MILLIGRAM, 5 EVERY 1 WEEK
     Route: 048
  8. HYDROMORPHONE [Concomitant]
     Active Substance: HYDROMORPHONE
     Dosage: 1.0 MILLIGRAM, 1 EVERY 4 HOURS
     Route: 048
  9. LEVOFLOXACIN [Concomitant]
     Active Substance: LEVOFLOXACIN
  10. METHOTREXATE [Concomitant]
     Active Substance: METHOTREXATE
     Dosage: 25.0 MILLIGRAM, 1 EVERY 1 WEEKS
     Route: 048
  11. METHYLPREDNISOLONE SODIUM SUCCINATE [Concomitant]
     Active Substance: METHYLPREDNISOLONE SODIUM SUCCINATE
     Indication: Premedication
     Dosage: 100.0 MILLIGRAM
     Route: 042
  12. PANTOPRAZOLE SODIUM [Concomitant]
     Active Substance: PANTOPRAZOLE SODIUM
     Dosage: 40.0 MILLIGRAM, 2 EVERY 1 DAYS
     Route: 048
  13. PREDNISONE [Concomitant]
     Active Substance: PREDNISONE
     Dosage: 5.0 MILLIGRAM, 1 EVERY 1 DAYS
     Route: 048
  14. ROSUVASTATIN [Concomitant]
     Active Substance: ROSUVASTATIN
     Indication: Blood cholesterol
     Dosage: 40.0 MILLIGRAM, 1 EVERY 1 DAYS
     Route: 048
  15. ALBUTEROL [Concomitant]
     Active Substance: ALBUTEROL
     Dosage: 100.0 MICROGRAM, 4 EVERY 1 DAYS
  16. SYNTHROID [Concomitant]
     Active Substance: LEVOTHYROXINE SODIUM
     Dosage: 0.05 MILLIGRAM, 1 EVERY 1 DAYS
     Route: 048
  17. TOLTERODINE [Concomitant]
     Active Substance: TOLTERODINE
     Dosage: 4.0 MILLIGRAM, 1 EVERY 1 DAYS
     Route: 048
  18. ZENHALE [Concomitant]
     Active Substance: FORMOTEROL FUMARATE\MOMETASONE FUROATE
     Dosage: 100 MICOGRAM, 2 EVERY 1 DAYS

REACTIONS (11)
  - Blood pressure diastolic abnormal [Recovered/Resolved]
  - Blood pressure diastolic decreased [Recovered/Resolved]
  - Blood pressure systolic increased [Recovered/Resolved]
  - Body temperature decreased [Recovered/Resolved]
  - Blood pressure systolic abnormal [Recovered/Resolved]
  - Pneumonia [Recovered/Resolved]
  - Blood pressure increased [Recovered/Resolved]
  - Blood pressure fluctuation [Recovered/Resolved]
  - Heart rate decreased [Recovered/Resolved]
  - Off label use [Recovered/Resolved]
  - Off label use [Unknown]
